FAERS Safety Report 15389164 (Version 2)
Quarter: 2018Q4

REPORT INFORMATION
  Report Type: Spontaneous
  Country: US (occurrence: US)
  Receive Date: 20180917
  Receipt Date: 20181004
  Transmission Date: 20190204
  Serious: Yes (Life-Threatening, Other)
  Sender: FDA-Public Use
  Company Number: US-009507513-1809USA000047

PATIENT
  Sex: Female

DRUGS (3)
  1. NEOSTIGMINE METHYLSULFATE. [Concomitant]
     Active Substance: NEOSTIGMINE METHYLSULFATE
  2. BRIDION [Suspect]
     Active Substance: SUGAMMADEX
     Indication: NEUROMUSCULAR BLOCKADE REVERSAL
     Dosage: 150 MG, UNK
     Route: 042
  3. BRIDION [Suspect]
     Active Substance: SUGAMMADEX
     Dosage: A LOW DOSE

REACTIONS (7)
  - Skin disorder [Recovered/Resolved]
  - Circulatory collapse [Recovered/Resolved]
  - Hypotension [Recovered/Resolved]
  - Depressed level of consciousness [Unknown]
  - Hypoventilation [Recovered/Resolved]
  - Bradycardia [Recovered/Resolved]
  - Exposure during pregnancy [Unknown]
